FAERS Safety Report 10049667 (Version 8)
Quarter: 2016Q4

REPORT INFORMATION
  Report Type: Report from Study
  Country: CN (occurrence: CN)
  Receive Date: 20140401
  Receipt Date: 20161020
  Transmission Date: 20170206
  Serious: Yes (Death, Life-Threatening)
  Sender: FDA-Public Use
  Company Number: CN-SA-2014SA039359

PATIENT
  Age: 80 Year
  Sex: Male
  Weight: 71 kg

DRUGS (10)
  1. DOCETAXEL. [Suspect]
     Active Substance: DOCETAXEL
     Indication: PROSTATE CANCER
     Route: 065
     Dates: start: 20130810, end: 20130810
  2. DOCETAXEL. [Suspect]
     Active Substance: DOCETAXEL
     Indication: PROSTATE CANCER
     Route: 065
     Dates: start: 20131108, end: 20131108
  3. MORPHINE SULFATE. [Concomitant]
     Active Substance: MORPHINE SULFATE
     Route: 048
     Dates: start: 20131114, end: 201312
  4. DEXAMETHASONE. [Concomitant]
     Active Substance: DEXAMETHASONE
     Dates: start: 20130809, end: 20131108
  5. FENTANYL. [Concomitant]
     Active Substance: FENTANYL
     Dosage: DOSE: 4.2/3 DAY
     Dates: start: 20131121, end: 201312
  6. ENANTONE LP [Concomitant]
     Active Substance: LEUPROLIDE ACETATE
     Indication: PROSTATE CANCER
     Dates: start: 20130220, end: 201312
  7. DOCETAXEL. [Suspect]
     Active Substance: DOCETAXEL
     Indication: PROSTATE CANCER
     Route: 065
     Dates: start: 20130902, end: 20131016
  8. ACETAMINOPHEN. [Concomitant]
     Active Substance: ACETAMINOPHEN
     Route: 048
     Dates: start: 20131114, end: 201312
  9. PREDNISONE. [Suspect]
     Active Substance: PREDNISONE
     Indication: PROSTATE CANCER
     Route: 065
     Dates: start: 20130811, end: 20131106
  10. FELODIPINE. [Concomitant]
     Active Substance: FELODIPINE
     Indication: HYPERTENSION
     Route: 048
     Dates: start: 20131108, end: 201312

REACTIONS (1)
  - Altered state of consciousness [Fatal]

NARRATIVE: CASE EVENT DATE: 201312
